FAERS Safety Report 8480397-6 (Version None)
Quarter: 2012Q3

REPORT INFORMATION
  Report Type: 
  Country: None (occurrence: None)
  Receive Date: 20120702
  Receipt Date: 20120627
  Transmission Date: 20120928
  Serious: Yes (Death, Other)
  Sender: FDA-Public Use
  Company Number: BR-ROCHE-1073037

PATIENT
  Age: 14 Year
  Sex: Female

DRUGS (3)
  1. MABTHERA [Suspect]
     Indication: CONVULSION
  2. MABTHERA [Suspect]
     Indication: SYSTEMIC LUPUS ERYTHEMATOSUS
  3. MABTHERA [Suspect]
     Indication: RENAL FAILURE ACUTE

REACTIONS (4)
  - HAEMORRHAGE [None]
  - PULMONARY EMBOLISM [None]
  - COAGULATION TEST ABNORMAL [None]
  - DISSEMINATED INTRAVASCULAR COAGULATION [None]
